FAERS Safety Report 18731462 (Version 1)
Quarter: 2021Q1

REPORT INFORMATION
  Report Type: Spontaneous
  Country: AU (occurrence: AU)
  Receive Date: 20210112
  Receipt Date: 20210112
  Transmission Date: 20210419
  Serious: Yes (Hospitalization)
  Sender: FDA-Public Use
  Company Number: AU-VERITY PHARMACEUTICALS, INC.-2021VTY00001

PATIENT
  Sex: Male

DRUGS (1)
  1. TRIPTORELIN PAMOATE [Suspect]
     Active Substance: TRIPTORELIN PAMOATE
     Indication: PROSTATE CANCER METASTATIC
     Dosage: 22.5 MG, 2X/YEAR (6 M)
     Route: 065

REACTIONS (2)
  - Inappropriate schedule of product administration [Unknown]
  - Palpitations [Unknown]

NARRATIVE: CASE EVENT DATE: 202012
